FAERS Safety Report 15158542 (Version 1)
Quarter: 2018Q3

REPORT INFORMATION
  Report Type: Spontaneous
  Country: GR (occurrence: GR)
  Receive Date: 20180718
  Receipt Date: 20180718
  Transmission Date: 20181010
  Serious: Yes (Other)
  Sender: FDA-Public Use
  Company Number: PHHY2018GR042306

PATIENT
  Age: 55 Year
  Sex: Female

DRUGS (3)
  1. D?PENICILLAMINE [Suspect]
     Active Substance: PENICILLAMINE
     Indication: SYSTEMIC SCLERODERMA
     Route: 065
  2. RITUXIMAB. [Suspect]
     Active Substance: RITUXIMAB
     Indication: SYSTEMIC SCLERODERMA
     Route: 065
  3. METHOTREXATE. [Suspect]
     Active Substance: METHOTREXATE
     Indication: SYSTEMIC SCLERODERMA
     Route: 065

REACTIONS (2)
  - Systemic scleroderma [Unknown]
  - Condition aggravated [Unknown]
